FAERS Safety Report 7042129-8 (Version None)
Quarter: 2010Q4

REPORT INFORMATION
  Report Type: 
  Country: None (occurrence: None)
  Receive Date: 20101013
  Receipt Date: 20100406
  Transmission Date: 20110411
  Serious: No
  Sender: FDA-Public Use
  Company Number: US-ASTRAZENECA-2010SE15076

PATIENT
  Age: 22 Year
  Sex: Male
  Weight: 117 kg

DRUGS (10)
  1. SYMBICORT [Suspect]
     Indication: ASTHMA
     Dosage: 640 MCG
     Route: 055
     Dates: start: 20100201
  2. LISINOPRIL [Concomitant]
  3. PROTONIX [Concomitant]
  4. LIPITOR [Concomitant]
  5. ROCALTROL [Concomitant]
  6. SYNTHROID [Concomitant]
  7. EXFORGE [Concomitant]
  8. ALLEGRA D 24 HOUR [Concomitant]
  9. ALBUTEROL [Concomitant]
  10. FISH OIL [Concomitant]

REACTIONS (1)
  - VITAMIN D DEFICIENCY [None]
